FAERS Safety Report 18607078 (Version 1)
Quarter: 2020Q4

REPORT INFORMATION
  Report Type: Spontaneous
  Country: US (occurrence: US)
  Receive Date: 20201211
  Receipt Date: 20201211
  Transmission Date: 20210114
  Serious: No
  Sender: FDA-Public Use
  Company Number: US-PFIZER INC-2020487753

PATIENT

DRUGS (2)
  1. ADVIL [Suspect]
     Active Substance: IBUPROFEN
     Indication: TEETHING
     Dosage: UNK, EVERY 6 HOURS
     Dates: start: 20201116, end: 20201117
  2. TYLENOL [Concomitant]
     Active Substance: ACETAMINOPHEN
     Dosage: UNK, EVERY 6 HOURS
     Dates: start: 20201116, end: 20201117

REACTIONS (4)
  - Tooth abscess [Unknown]
  - Toothache [Unknown]
  - Drug ineffective [Unknown]
  - Condition aggravated [Unknown]

NARRATIVE: CASE EVENT DATE: 20201116
